FAERS Safety Report 10777951 (Version 1)
Quarter: 2015Q1

REPORT INFORMATION
  Report Type: Spontaneous
  Country: US (occurrence: US)
  Receive Date: 20150209
  Receipt Date: 20150209
  Transmission Date: 20150721
  Serious: No
  Sender: FDA-Public Use
  Company Number: US-AMGEN-USASP2014023456

PATIENT
  Age: 57 Year
  Sex: Female

DRUGS (12)
  1. CARBOPLATIN. [Concomitant]
     Active Substance: CARBOPLATIN
     Dosage: 270 MG, UNK
     Route: 042
  2. BENADRYL [Concomitant]
     Active Substance: DIPHENHYDRAMINE HYDROCHLORIDE
     Dosage: 50 MG, UNK
     Route: 042
  3. DECADRON [Concomitant]
     Active Substance: DEXAMETHASONE
     Dosage: 10 MG, UNK
     Route: 042
  4. TAXOL [Concomitant]
     Active Substance: PACLITAXEL
     Dosage: 100 MG, UNK
     Route: 042
  5. HERCEPTIN [Suspect]
     Active Substance: TRASTUZUMAB
     Indication: BREAST CANCER
     Dosage: 4 MG/KG, UNK
     Route: 042
     Dates: start: 20110502
  6. ZANTAC [Concomitant]
     Active Substance: RANITIDINE HYDROCHLORIDE
     Dosage: 50 MG, UNK
  7. HERCEPTIN [Suspect]
     Active Substance: TRASTUZUMAB
     Dosage: 6 MG/KG, UNK
     Route: 042
     Dates: start: 20110822
  8. TYLENOL [Concomitant]
     Active Substance: ACETAMINOPHEN
     Dosage: UNK
     Route: 048
  9. HERCEPTIN [Suspect]
     Active Substance: TRASTUZUMAB
     Dosage: 2 MG/KG, 1 IN 1 WK
     Route: 042
     Dates: start: 20110705
  10. ALOXI [Concomitant]
     Active Substance: PALONOSETRON HYDROCHLORIDE
     Dosage: 0.25 MG, UNK
     Route: 042
  11. NEULASTA [Suspect]
     Active Substance: PEGFILGRASTIM
     Indication: PRODUCT USED FOR UNKNOWN INDICATION
     Dosage: 6 MG, UNK
     Route: 058
     Dates: start: 20110822
  12. ZOMETA [Concomitant]
     Active Substance: ZOLEDRONIC ACID
     Dosage: 4 MG, UNK

REACTIONS (10)
  - Abdominal discomfort [Unknown]
  - Dyspnoea [Unknown]
  - Musculoskeletal pain [Unknown]
  - Ear discomfort [Unknown]
  - Hypoaesthesia [Unknown]
  - Abdominal distension [Unknown]
  - Increased viscosity of bronchial secretion [Unknown]
  - Headache [Unknown]
  - Abdominal pain upper [Unknown]
  - Pain in extremity [Unknown]
